FAERS Safety Report 9282749 (Version 1)
Quarter: 2013Q2

REPORT INFORMATION
  Report Type: Spontaneous
  Country: US (occurrence: None)
  Receive Date: 20130509
  Receipt Date: 20130509
  Transmission Date: 20140414
  Serious: Yes (Disabling, Other)
  Sender: FDA-Public Use
  Company Number: None

PATIENT
  Age: 67 Year
  Sex: Male
  Weight: 117.94 kg

DRUGS (2)
  1. LEVOFLOXACIN [Suspect]
     Indication: SINUSITIS
     Dosage: ONE TABLET BY MOUTH DAILY MOUTH
     Route: 048
     Dates: start: 20130313, end: 20130319
  2. LEVOFLOXACIN [Suspect]
     Indication: UPPER RESPIRATORY TRACT INFECTION
     Dosage: ONE TABLET BY MOUTH DAILY MOUTH
     Route: 048
     Dates: start: 20130313, end: 20130319

REACTIONS (2)
  - Arthralgia [None]
  - Pain in extremity [None]
